FAERS Safety Report 8013231-9 (Version None)
Quarter: 2011Q4

REPORT INFORMATION
  Report Type: 
  Country: None (occurrence: None)
  Receive Date: 20111229
  Receipt Date: 20111229
  Transmission Date: 20120403
  Serious: No
  Sender: FDA-Public Use
  Company Number: None

PATIENT
  Sex: Male
  Weight: 92.532 kg

DRUGS (1)
  1. AVODART [Suspect]
     Indication: BENIGN PROSTATIC HYPERPLASIA
     Dosage: ONE CAPSULE
     Route: 048
     Dates: start: 20101018, end: 20111210

REACTIONS (4)
  - BREAST DISCOMFORT [None]
  - BREAST PAIN [None]
  - BREAST SWELLING [None]
  - NIPPLE PAIN [None]
